FAERS Safety Report 9988716 (Version 1)
Quarter: 2013Q4

REPORT INFORMATION
  Report Type: Spontaneous
  Country: FR (occurrence: None)
  Receive Date: 20131015
  Receipt Date: 20131015
  Transmission Date: 20140711
  Serious: Yes (Hospitalization)
  Sender: FDA-Public Use
  Company Number: 2013257834

PATIENT
  Age: 74 Year
  Sex: Female

DRUGS (6)
  1. FRAGMINE [Suspect]
     Dosage: 5000 IU , DAILY, SUBCUTANEOUS THERAPY 16JUN2013-24JUN2013
     Route: 058
     Dates: start: 20130616, end: 20130624
  2. LYRICA [Suspect]
     Indication: SCIATICA
     Dosage: 25 MG. 2X/DAY, ORAL  18JUN2013-25JUN2013 THERAPY DATES
     Route: 048
     Dates: start: 20130618, end: 20130625
  3. SKENAN [Suspect]
     Indication: SCIATICA
     Dosage: 10 MG, 2X/DAY , ORAL  THERAPY DATES19JUN2013 UNTIL 25JUN2013
     Route: 048
     Dates: start: 20130619, end: 20130625
  4. OROCAL [Suspect]
     Dosage: 500 MG, 1X/DAY , ORAL  21JUN2013 TO 23JUN2013
     Route: 048
     Dates: start: 20130621, end: 20130623
  5. LACTULOSE (LACTULOSE) [Suspect]
     Route: 048
     Dates: start: 20130620, end: 20130624
  6. DOLIPRANE (PARACETAMOL) [Concomitant]

REACTIONS (1)
  - Cholestasis [None]
